FAERS Safety Report 16049474 (Version 1)
Quarter: 2019Q1

REPORT INFORMATION
  Report Type: Report from Study
  Country: MY (occurrence: MY)
  Receive Date: 20190307
  Receipt Date: 20190307
  Transmission Date: 20190418
  Serious: Yes (Death, Other)
  Sender: FDA-Public Use
  Company Number: MY-B.I. PHARMACEUTICALS,INC./RIDGEFIELD-2017-BI-040249

PATIENT
  Age: 47 Year
  Sex: Male

DRUGS (8)
  1. AFATINIB [Suspect]
     Active Substance: AFATINIB
     Route: 048
     Dates: start: 201310
  2. AFATINIB [Suspect]
     Active Substance: AFATINIB
     Indication: NON-SMALL CELL LUNG CANCER
     Route: 048
     Dates: start: 20130730, end: 201310
  3. AFATINIB [Suspect]
     Active Substance: AFATINIB
     Route: 048
     Dates: start: 20140301
  4. GENCITABINE [Concomitant]
     Active Substance: GEMCITABINE HYDROCHLORIDE
     Indication: PRODUCT USED FOR UNKNOWN INDICATION
     Route: 065
     Dates: start: 201507, end: 201508
  5. TRAMADOL. [Concomitant]
     Active Substance: TRAMADOL
     Indication: PAIN
     Route: 065
  6. AFATINIB [Suspect]
     Active Substance: AFATINIB
     Route: 048
     Dates: start: 20131217
  7. AFATINIB [Suspect]
     Active Substance: AFATINIB
     Route: 048
  8. BROMHEXINE [Concomitant]
     Active Substance: BROMHEXINE
     Indication: PRODUCT USED FOR UNKNOWN INDICATION
     Route: 065

REACTIONS (6)
  - Malignant neoplasm progression [Fatal]
  - Pneumonia [Fatal]
  - Drug tolerance decreased [Unknown]
  - Stomatitis [Unknown]
  - Diarrhoea [Unknown]
  - Palmar-plantar erythrodysaesthesia syndrome [Unknown]
